FAERS Safety Report 5515019-7 (Version None)
Quarter: 2007Q4

REPORT INFORMATION
  Report Type: 
  Country: None (occurrence: None)
  Receive Date: 20071113
  Receipt Date: 20070613
  Transmission Date: 20080405
  Serious: No
  Sender: FDA-Public Use
  Company Number: A0627681A

PATIENT
  Age: 65 Year
  Sex: Female

DRUGS (4)
  1. COREG [Suspect]
     Indication: CARDIOMYOPATHY
     Dosage: 6.25MG TWICE PER DAY
     Route: 048
     Dates: start: 20030101
  2. PREMARIN [Concomitant]
  3. PROTONIX [Concomitant]
  4. XALATAN [Concomitant]

REACTIONS (3)
  - BLOOD GLUCOSE INCREASED [None]
  - BLOOD PRESSURE INCREASED [None]
  - DYSSTASIA [None]
